FAERS Safety Report 5727995-8 (Version None)
Quarter: 2008Q2

REPORT INFORMATION
  Report Type: 
  Country: None (occurrence: None)
  Receive Date: 20080505
  Receipt Date: 20080502
  Transmission Date: 20081010
  Serious: Yes (Hospitalization)
  Sender: FDA-Public Use
  Company Number: JP-BOEHRINGER INGELHEIM GMBH, GERMANY-2008-BP-06922NB

PATIENT
  Age: 84 Year
  Sex: Female

DRUGS (5)
  1. MICARDIS [Suspect]
     Indication: HYPERTENSION
     Route: 048
     Dates: start: 20080401, end: 20080501
  2. CEPHADOL [Suspect]
     Route: 048
     Dates: start: 20080401
  3. ASPIRIN [Concomitant]
     Route: 048
  4. PARIET [Concomitant]
     Route: 048
  5. MUCOSTA [Concomitant]
     Route: 048

REACTIONS (4)
  - FALL [None]
  - HAEMOTHORAX [None]
  - RIB FRACTURE [None]
  - SYNCOPE [None]
